FAERS Safety Report 5739315-3 (Version None)
Quarter: 2008Q2

REPORT INFORMATION
  Report Type: 
  Country: None (occurrence: None)
  Receive Date: 20080515
  Receipt Date: 20080515
  Transmission Date: 20081010
  Serious: Yes (Life-Threatening, Hospitalization)
  Sender: FDA-Public Use
  Company Number: None

PATIENT
  Age: 57 Year
  Sex: Male
  Weight: 108.8633 kg

DRUGS (2)
  1. HEPARIN [Suspect]
     Indication: DRUG THERAPY
     Dosage: (DATES OF USE: APRIL - JUNE)
  2. HEPARIN [Suspect]
     Indication: INTRAVENOUS CATHETER MANAGEMENT
     Dosage: (DATES OF USE: APRIL - JUNE)

REACTIONS (2)
  - CHILLS [None]
  - PYREXIA [None]
